FAERS Safety Report 9393729 (Version 2)
Quarter: 2013Q3

REPORT INFORMATION
  Report Type: Spontaneous
  Country: US (occurrence: US)
  Receive Date: 20130710
  Receipt Date: 20130806
  Transmission Date: 20140515
  Serious: Yes (Death)
  Sender: FDA-Public Use
  Company Number: US-BAYER-2013-081791

PATIENT
  Age: 69 Year
  Sex: Female

DRUGS (16)
  1. BETASERON [Suspect]
     Indication: MULTIPLE SCLEROSIS
     Dosage: 0.25 MG, QOD (MIX 1.2ML OF DILUENT AND INJECT 0.25MG)
     Route: 058
     Dates: start: 20090417
  2. ADVAIR DISKUS [Concomitant]
  3. ARICEPT [Concomitant]
  4. BACLOFEN [Concomitant]
  5. CYCLOBENZAPRINE [Concomitant]
  6. DEXILANT [Concomitant]
  7. EVOXAC [Concomitant]
  8. GABAPENTIN [Concomitant]
  9. KLOR-CON [Concomitant]
  10. LISINOPRIL [Concomitant]
  11. LYRICA [Concomitant]
  12. MORPHINE [Concomitant]
  13. OXYCONTIN [Concomitant]
  14. PLAVIX [Concomitant]
  15. SULINDAC [Concomitant]
  16. TRIMETHOPRIM [Concomitant]

REACTIONS (1)
  - Death [Fatal]
